FAERS Safety Report 6648401-5 (Version None)
Quarter: 2010Q1

REPORT INFORMATION
  Report Type: 
  Country: None (occurrence: None)
  Receive Date: 20100318
  Receipt Date: 20100309
  Transmission Date: 20100710
  Serious: Yes (Hospitalization)
  Sender: FDA-Public Use
  Company Number: GRP10000022

PATIENT
  Sex: Female

DRUGS (3)
  1. ACTONEL [Suspect]
     Indication: OSTEOPOROSIS
     Dosage: 35 MG 1/WEEK, ORAL
     Route: 048
     Dates: end: 20090101
  2. ATORVASTATIN CALCIUM [Suspect]
     Dosage: ORAL
     Route: 048
  3. CALCIMAGON-D-3   (CALCIUM CARBONATE, COLECALCIFEROL) [Suspect]

REACTIONS (1)
  - AMNESIA [None]
